FAERS Safety Report 7927824-8 (Version None)
Quarter: 2011Q4

REPORT INFORMATION
  Report Type: 
  Country: None (occurrence: None)
  Receive Date: 20111118
  Receipt Date: 20111114
  Transmission Date: 20120403
  Serious: Yes (Death)
  Sender: FDA-Public Use
  Company Number: US-SANOFI-AVENTIS-2011SA075118

PATIENT
  Age: 60 Year
  Sex: Male

DRUGS (1)
  1. LOVENOX [Suspect]
     Dates: start: 20111111

REACTIONS (1)
  - DEATH [None]
